FAERS Safety Report 23094194 (Version 1)
Quarter: 2023Q4

REPORT INFORMATION
  Report Type: Report from Study
  Country: PL (occurrence: PL)
  Receive Date: 20231023
  Receipt Date: 20231023
  Transmission Date: 20240109
  Serious: Yes (Other)
  Sender: FDA-Public Use
  Company Number: PL-ABBVIE-5461454

PATIENT
  Sex: Male

DRUGS (3)
  1. CARBIDOPA\LEVODOPA [Suspect]
     Active Substance: CARBIDOPA\LEVODOPA
     Indication: Parkinson^s disease
     Dosage: 5 ML/H
     Route: 050
     Dates: start: 202103
  2. CARBIDOPA\LEVODOPA [Suspect]
     Active Substance: CARBIDOPA\LEVODOPA
     Dosage: 4,8 ML/H
     Route: 050
  3. ENTACAPONE [Concomitant]
     Active Substance: ENTACAPONE
     Indication: Product used for unknown indication
     Route: 065

REACTIONS (6)
  - Venous thrombosis limb [Unknown]
  - Agitation [Unknown]
  - Psychotic symptom [Unknown]
  - Amino acid level abnormal [Unknown]
  - Blood homocysteine abnormal [Unknown]
  - Gastrointestinal bacterial overgrowth [Unknown]
